FAERS Safety Report 20026319 (Version 4)
Quarter: 2022Q1

REPORT INFORMATION
  Report Type: Other
  Country: JP (occurrence: JP)
  Receive Date: 20211102
  Receipt Date: 20220329
  Transmission Date: 20220423
  Serious: Yes (Hospitalization, Other)
  Sender: FDA-Public Use
  Company Number: JP-CHUGAI-2021024002

PATIENT
  Age: 78 Year
  Sex: Male
  Weight: 63 kg

DRUGS (8)
  1. ATEZOLIZUMAB [Suspect]
     Active Substance: ATEZOLIZUMAB
     Indication: Lung adenocarcinoma
     Dosage: 1200 MILLIGRAM
     Route: 041
     Dates: start: 20210108, end: 20210517
  2. BEVACIZUMAB [Suspect]
     Active Substance: BEVACIZUMAB
     Indication: Lung adenocarcinoma
     Route: 041
     Dates: start: 20210108
  3. BEVACIZUMAB [Suspect]
     Active Substance: BEVACIZUMAB
     Dosage: ON 17/MAY/2021, HE RECEIVED MOST RECENT DOSE OF BEVACIZUMAB.?910 MG
     Route: 041
     Dates: end: 20210517
  4. BEVACIZUMAB [Suspect]
     Active Substance: BEVACIZUMAB
     Dosage: SINGLE
     Route: 041
     Dates: start: 20210129
  5. BEVACIZUMAB [Suspect]
     Active Substance: BEVACIZUMAB
     Route: 041
     Dates: start: 20210222, end: 20210315
  6. CARBOPLATIN [Suspect]
     Active Substance: CARBOPLATIN
     Indication: Lung adenocarcinoma
     Dosage: 530 MILLIGRAM
     Route: 041
     Dates: start: 20210108
  7. CARBOPLATIN [Suspect]
     Active Substance: CARBOPLATIN
     Dosage: ON 15/MAR/2021, HE RECEIVED MOST RECENT DOSE OF CARBOPLATIN.
     Route: 041
     Dates: end: 20210315
  8. PACLITAXEL [Suspect]
     Active Substance: PACLITAXEL
     Indication: Lung adenocarcinoma
     Dosage: ON 15/MAR/2021, HE RECEIVED MOST RECENT DOSE OF PACLITAXEL.
     Route: 041
     Dates: start: 20210108, end: 20210315

REACTIONS (5)
  - Interstitial lung disease [Recovered/Resolved]
  - Febrile neutropenia [Recovered/Resolved]
  - Hiccups [Recovered/Resolved]
  - Constipation [Not Recovered/Not Resolved]
  - Peripheral sensory neuropathy [Not Recovered/Not Resolved]

NARRATIVE: CASE EVENT DATE: 20210109
